FAERS Safety Report 5723322-0 (Version None)
Quarter: 2008Q2

REPORT INFORMATION
  Report Type: 
  Country: None (occurrence: None)
  Receive Date: 20080430
  Receipt Date: 20080430
  Transmission Date: 20081010
  Serious: Yes (Death)
  Sender: FDA-Public Use
  Company Number: None

PATIENT
  Sex: Female
  Weight: 72.5755 kg

DRUGS (1)
  1. HEPARIN [Suspect]
     Indication: BLOOD PRESSURE INCREASED
     Dates: start: 20071105, end: 20071106

REACTIONS (7)
  - BLOOD PRESSURE DECREASED [None]
  - CEREBRAL DISORDER [None]
  - CEREBRAL HAEMORRHAGE [None]
  - EMBOLISM [None]
  - ILL-DEFINED DISORDER [None]
  - SKIN DISCOLOURATION [None]
  - UNRESPONSIVE TO STIMULI [None]
